FAERS Safety Report 18677479 (Version 3)
Quarter: 2023Q4

REPORT INFORMATION
  Report Type: Report from Study
  Country: BR (occurrence: BR)
  Receive Date: 20201229
  Receipt Date: 20231221
  Transmission Date: 20240110
  Serious: No
  Sender: FDA-Public Use
  Company Number: NVSC2020BR343147

PATIENT
  Sex: Female

DRUGS (2)
  1. TEGRETOL XR [Suspect]
     Active Substance: CARBAMAZEPINE
     Indication: Epilepsy
     Dosage: 400 MG, TID (AT MORNING, AFTERNOON AND NIGHT)
     Route: 048
     Dates: start: 202011
  2. CARBAMAZEPINE [Suspect]
     Active Substance: CARBAMAZEPINE
     Indication: Epilepsy
     Dosage: 200 MG, TID (2 AND A HALF TABLETS 3 TIMES A DAY (MORNING, AFTERNOON AND AT NIGHT)
     Route: 048
     Dates: end: 202011

REACTIONS (4)
  - Cyst [Unknown]
  - Pain in extremity [Recovered/Resolved]
  - Memory impairment [Recovered/Resolved]
  - Drug ineffective [Unknown]

NARRATIVE: CASE EVENT DATE: 20030101
